FAERS Safety Report 9228568 (Version 1)
Quarter: 2013Q2

REPORT INFORMATION
  Report Type: Report from Study
  Country: US (occurrence: US)
  Receive Date: 20130412
  Receipt Date: 20130412
  Transmission Date: 20140414
  Serious: Yes (Death, Hospitalization)
  Sender: FDA-Public Use
  Company Number: US-ROCHE-1120802

PATIENT
  Age: 70 Year
  Sex: Male
  Weight: 87.62 kg

DRUGS (1)
  1. XELODA [Suspect]
     Indication: BILE DUCT CANCER
     Route: 048
     Dates: start: 20120724, end: 20120829

REACTIONS (3)
  - Sepsis [Recovering/Resolving]
  - Pyrexia [Recovered/Resolved]
  - Disease progression [Fatal]
